FAERS Safety Report 5715543-8 (Version None)
Quarter: 2008Q2

REPORT INFORMATION
  Report Type: 
  Country: None (occurrence: None)
  Receive Date: 20080422
  Receipt Date: 20080410
  Transmission Date: 20081010
  Serious: Yes (Hospitalization)
  Sender: FDA-Public Use
  Company Number: 2008BI009723

PATIENT
  Age: 62 Year
  Sex: Female
  Weight: 62.1428 kg

DRUGS (8)
  1. TYSABRI [Suspect]
     Indication: MULTIPLE SCLEROSIS
     Dosage: 300 MG; QM; IV
     Route: 042
     Dates: start: 20061101, end: 20071201
  2. NEURONTIN [Concomitant]
  3. PROVIGIL [Concomitant]
  4. VYTORIN [Concomitant]
  5. PROZAC [Concomitant]
  6. CYMBALTA [Concomitant]
  7. VICODIN [Concomitant]
  8. FENTANYL [Concomitant]

REACTIONS (9)
  - DYSPHAGIA [None]
  - EATING DISORDER [None]
  - HIATUS HERNIA [None]
  - MUSCULOSKELETAL DISORDER [None]
  - NECK PAIN [None]
  - PAIN [None]
  - PAIN IN EXTREMITY [None]
  - SPINAL CORD COMPRESSION [None]
  - UNEVALUABLE EVENT [None]
